FAERS Safety Report 24977351 (Version 1)
Quarter: 2025Q1

REPORT INFORMATION
  Report Type: Spontaneous
  Country: US (occurrence: US)
  Receive Date: 20250217
  Receipt Date: 20250217
  Transmission Date: 20250408
  Serious: Yes (Death, Hospitalization, Other)
  Sender: BOEHRINGER INGELHEIM
  Company Number: US-BoehringerIngelheim-2025-BI-008704

PATIENT
  Age: 78 Year
  Sex: Male
  Weight: 126.55 kg

DRUGS (24)
  1. JARDIANCE [Suspect]
     Active Substance: EMPAGLIFLOZIN
     Indication: Product used for unknown indication
  2. TRULICITY [Suspect]
     Active Substance: DULAGLUTIDE
     Indication: Product used for unknown indication
     Dosage: 4.5 MG/O.5 ML SUBCUTANEOUS PEN INJECTOR
     Dates: start: 20240411
  3. NOVOLIN R [Concomitant]
     Active Substance: INSULIN HUMAN
     Indication: Blood glucose increased
     Dates: start: 20240610, end: 20240610
  4. NOVOLIN N [Concomitant]
     Active Substance: INSULIN HUMAN
     Indication: Product used for unknown indication
     Dosage: 16 UNITS, MORNING
     Dates: start: 20240104, end: 20240104
  5. GLUCAGON [Concomitant]
     Active Substance: GLUCAGON
     Indication: Product used for unknown indication
  6. FENOFIBRATE [Concomitant]
     Active Substance: FENOFIBRATE
     Indication: Blood triglycerides abnormal
     Dates: start: 20240806, end: 20240806
  7. ROSUVASTATIN [Concomitant]
     Active Substance: ROSUVASTATIN
     Indication: Product used for unknown indication
     Dosage: EVENING
  8. CANDESARTAN [Concomitant]
     Active Substance: CANDESARTAN
     Indication: Blood pressure abnormal
     Dosage: 32MG/ 25MG
     Dates: start: 20240411, end: 20240411
  9. CALCIUM [Concomitant]
     Active Substance: CALCIUM
     Indication: Product used for unknown indication
     Dosage: 600 + D(3) 600 MG (1,500 MG)-400 UNIT
  10. FISH OIL [Concomitant]
     Active Substance: FISH OIL
     Indication: Product used for unknown indication
     Dosage: CONCENTRATE
     Dates: start: 20130926
  11. ALBUTEROL\IPRATROPIUM [Concomitant]
     Active Substance: ALBUTEROL\IPRATROPIUM
     Indication: Product used for unknown indication
     Dosage: INHALE 3 MILLILITER BY NEBULIZATION ROUTE 3 ?TIMES EVERY DAY
     Dates: start: 20200310
  12. CORTISONE [Concomitant]
     Active Substance: CORTISONE
     Indication: Osteochondrosis
  13. CORTISONE [Concomitant]
     Active Substance: CORTISONE
     Indication: Osteoarthritis
  14. NITROGLYCERIN [Concomitant]
     Active Substance: NITROGLYCERIN
     Indication: Product used for unknown indication
  15. ALBUTEROL SULFATE [Concomitant]
     Active Substance: ALBUTEROL SULFATE
     Indication: Product used for unknown indication
     Dosage: INHALE 2 PUFF BY INHALATION ROUTE EVERY 6 ?HOURS AS NEEDED?1
     Dates: start: 20230504
  16. TAMSULOSIN [Concomitant]
     Active Substance: TAMSULOSIN
     Indication: Prostatic disorder
     Dosage: EVERY NIGHT ?90
     Dates: start: 20230811
  17. SPIRONOLACTONE [Concomitant]
     Active Substance: SPIRONOLACTONE
     Indication: Product used for unknown indication
     Dosage: EVERY DAY, 90
     Dates: start: 20231028
  18. VERAPAMIL HYDROCHLORIDE [Concomitant]
     Active Substance: VERAPAMIL HYDROCHLORIDE
     Indication: Product used for unknown indication
     Dosage: 180, TAKE 1 CAPSULE BY MOUTH TWICE A DAY
     Dates: start: 20240220, end: 20240220
  19. GABAPENTIN [Concomitant]
     Active Substance: GABAPENTIN
     Indication: Neuropathy peripheral
     Dosage: 270, TAKE 1 CAPSULE BY ORAL ROUTE IN THE ?MORNING AND 2 CAPSULES AT NIGHT FOR ?NEUROPATHY
     Dates: start: 20240315, end: 20240315
  20. ROSUVASTATIN [Concomitant]
     Active Substance: ROSUVASTATIN
     Indication: Blood cholesterol
     Dates: start: 20240318, end: 20240318
  21. STIOLTO RESPIMAT [Concomitant]
     Active Substance: OLODATEROL HYDROCHLORIDE\TIOTROPIUM BROMIDE MONOHYDRATE
     Indication: Product used for unknown indication
     Dates: start: 20240411, end: 20240411
  22. OXYBUTYNIN CHLORIDE [Concomitant]
     Active Substance: OXYBUTYNIN CHLORIDE
     Indication: Product used for unknown indication
  23. GVOKE [Concomitant]
     Active Substance: GLUCAGON
     Indication: Product used for unknown indication
     Dates: start: 20240109, end: 20240109
  24. OXYBUTYNIN CHLORIDE [Concomitant]
     Active Substance: OXYBUTYNIN CHLORIDE
     Indication: Product used for unknown indication
     Dates: start: 20240607

REACTIONS (6)
  - Death [Fatal]
  - Syncope [Unknown]
  - Cardiac arrest [Unknown]
  - Acute respiratory failure [Unknown]
  - Anoxia [Unknown]
  - Chronic obstructive pulmonary disease [Unknown]

NARRATIVE: CASE EVENT DATE: 20241210
